FAERS Safety Report 7020878-5 (Version None)
Quarter: 2010Q3

REPORT INFORMATION
  Report Type: 
  Country: None (occurrence: None)
  Receive Date: 20100929
  Receipt Date: 20100922
  Transmission Date: 20110219
  Serious: Yes (Other)
  Sender: FDA-Public Use
  Company Number: GB-NAPPMUNDI-GBR-2010-0007098

PATIENT
  Sex: Male

DRUGS (2)
  1. BUTRANS 5MG TRANSDERMAL PATCH [Suspect]
     Indication: PAIN
     Dosage: 5 MCG, Q1H
     Route: 062
  2. PARACETAMOL [Concomitant]
     Dosage: UNK
     Route: 048

REACTIONS (8)
  - ALTERED STATE OF CONSCIOUSNESS [None]
  - DIZZINESS [None]
  - FATIGUE [None]
  - FEELING ABNORMAL [None]
  - HYPERSOMNIA [None]
  - NAUSEA [None]
  - SOMNOLENCE [None]
  - VOMITING [None]
